FAERS Safety Report 17815744 (Version 1)
Quarter: 2020Q2

REPORT INFORMATION
  Report Type: Report from Study
  Country: CO (occurrence: CO)
  Receive Date: 20200522
  Receipt Date: 20200522
  Transmission Date: 20200714
  Serious: Yes (Hospitalization)
  Sender: FDA-Public Use
  Company Number: NVSC2019CO091122

PATIENT

DRUGS (1)
  1. ENTRESTO [Suspect]
     Active Substance: SACUBITRIL\VALSARTAN
     Indication: MYOCARDIAL INFARCTION
     Dosage: 1 DF, Q12H
     Route: 048

REACTIONS (4)
  - Product use in unapproved indication [Unknown]
  - Memory impairment [Unknown]
  - Streptococcal infection [Unknown]
  - Wound [Not Recovered/Not Resolved]
